FAERS Safety Report 7737280-0 (Version None)
Quarter: 2011Q3

REPORT INFORMATION
  Report Type: 
  Country: None (occurrence: None)
  Receive Date: 20110908
  Receipt Date: 20110829
  Transmission Date: 20111222
  Serious: Yes (Death, Life-Threatening, Hospitalization)
  Sender: FDA-Public Use
  Company Number: GB-ELI_LILLY_AND_COMPANY-GB201106008041

PATIENT
  Age: 64 Year
  Sex: Male
  Weight: 68.5 kg

DRUGS (9)
  1. DOMPERIDONE [Concomitant]
     Indication: VOMITING
     Dosage: UNK
     Dates: start: 20100804
  2. CISPLATIN [Suspect]
     Indication: NON-HODGKIN'S LYMPHOMA
     Dosage: 94 MG, SINGLE
     Route: 042
     Dates: start: 20100804, end: 20100804
  3. RITUXIMAB [Suspect]
     Indication: NON-HODGKIN'S LYMPHOMA
     Dosage: 700 MG, EVERY THREE WEEKS
     Route: 042
     Dates: start: 20100804, end: 20100804
  4. ONDANSETRON [Concomitant]
     Indication: VOMITING
     Dosage: UNK
     Dates: start: 20100804
  5. MORPHINE SULFATE [Concomitant]
     Indication: PAIN
     Dosage: UNK
     Dates: start: 20100803
  6. OTHER PHARMA COMPANY INV DRUG [Suspect]
     Indication: NON-HODGKIN'S LYMPHOMA
     Dosage: 1.5 MG, EVERY THREE WEEKS
     Route: 042
     Dates: start: 20100805, end: 20100805
  7. LANSOPRAZOLE [Concomitant]
     Dosage: UNK
     Dates: start: 20100804
  8. GEMCITABINE HYDROCHLORIDE [Suspect]
     Indication: NON-HODGKIN'S LYMPHOMA
     Dosage: 931 MG, EVERY THREE WEEKS
     Route: 042
     Dates: start: 20100804, end: 20100804
  9. DEXAMETHASONE [Suspect]
     Indication: NON-HODGKIN'S LYMPHOMA
     Dosage: 40 MG, QD
     Route: 048
     Dates: start: 20100804, end: 20100807

REACTIONS (1)
  - NEOPLASM PROGRESSION [None]
